FAERS Safety Report 24640186 (Version 1)
Quarter: 2024Q4

REPORT INFORMATION
  Report Type: Spontaneous
  Country: JP (occurrence: JP)
  Receive Date: 20241120
  Receipt Date: 20241120
  Transmission Date: 20250115
  Serious: Yes (Death)
  Sender: LEO PHARM
  Company Number: JP-LEO Pharma-375209

PATIENT
  Age: 69 Year
  Sex: Male

DRUGS (3)
  1. ENSTILAR [Suspect]
     Active Substance: BETAMETHASONE DIPROPIONATE\CALCIPOTRIENE HYDRATE
     Indication: Product used for unknown indication
  2. BRODALUMAB [Concomitant]
     Active Substance: BRODALUMAB
     Indication: Psoriasis
     Route: 058
     Dates: start: 201910
  3. Hirudoid Foam (heparinoid) [Concomitant]
     Indication: Product used for unknown indication
     Dosage: FOAM

REACTIONS (1)
  - Gastric cancer [Fatal]
